FAERS Safety Report 5789213-4 (Version None)
Quarter: 2008Q2

REPORT INFORMATION
  Report Type: 
  Country: None (occurrence: None)
  Receive Date: 20080625
  Receipt Date: 20080625
  Transmission Date: 20081010
  Serious: Yes (Death, Hospitalization)
  Sender: FDA-Public Use
  Company Number: None

PATIENT
  Sex: Female
  Weight: 74.27 kg

DRUGS (2)
  1. CYTARABINE [Suspect]
     Dosage: 31200MG
     Dates: end: 20080611
  2. G-CSF (FILGRASTIM, AMGEN) [Suspect]
     Dosage: 4320 MCG
     Dates: end: 20080619

REACTIONS (10)
  - BODY TEMPERATURE INCREASED [None]
  - BURNING SENSATION [None]
  - CARDIO-RESPIRATORY ARREST [None]
  - CHEST PAIN [None]
  - CHILLS [None]
  - DYSPEPSIA [None]
  - HAEMATOCRIT DECREASED [None]
  - HAEMOGLOBIN DECREASED [None]
  - PLATELET COUNT DECREASED [None]
  - RESPIRATORY ACIDOSIS [None]
